FAERS Safety Report 9990499 (Version 1)
Quarter: 2014Q1

REPORT INFORMATION
  Report Type: Report from Study
  Country: US (occurrence: US)
  Receive Date: 20140310
  Receipt Date: 20140310
  Transmission Date: 20141002
  Serious: No
  Sender: FDA-Public Use
  Company Number: US-ABBVIE-13P-163-1135337-00

PATIENT
  Age: 40 Year
  Sex: Female

DRUGS (3)
  1. PAXIL [Concomitant]
     Indication: ANXIETY
     Dosage: DAILY
  2. HUMIRA [Suspect]
     Indication: CROHN^S DISEASE
     Dates: start: 20130102
  3. LIALDA [Concomitant]
     Indication: CROHN^S DISEASE
     Dosage: DAILY

REACTIONS (3)
  - Asthenia [Unknown]
  - Chills [Recovering/Resolving]
  - Pyrexia [Recovering/Resolving]
